FAERS Safety Report 9468498 (Version 2)
Quarter: 2013Q3

REPORT INFORMATION
  Report Type: Spontaneous
  Country: US (occurrence: US)
  Receive Date: 20130821
  Receipt Date: 20130912
  Transmission Date: 20140515
  Serious: Yes (Other)
  Sender: FDA-Public Use
  Company Number: US-BAYER-2013-100568

PATIENT
  Age: 21 Year
  Sex: Female
  Weight: 56.24 kg

DRUGS (2)
  1. MIRENA [Suspect]
     Indication: CONTRACEPTION
     Dosage: 20 MCG/24HR, CONT
     Route: 015
     Dates: start: 20100527, end: 20130814
  2. CITALOPRAM [Concomitant]
     Indication: DEPRESSION
     Dosage: UNK, UNK, DAILY

REACTIONS (2)
  - Genital haemorrhage [Recovered/Resolved]
  - Unintentional medical device removal [Recovered/Resolved]
